FAERS Safety Report 6004425-2 (Version None)
Quarter: 2008Q4

REPORT INFORMATION
  Report Type: 
  Country: None (occurrence: None)
  Receive Date: 20081216
  Receipt Date: 20081211
  Transmission Date: 20090506
  Serious: Yes (Hospitalization)
  Sender: FDA-Public Use
  Company Number: DE-MERCK-0812DEU00208

PATIENT
  Sex: Male

DRUGS (8)
  1. SINGULAIR [Suspect]
     Indication: ASTHMA
     Route: 048
     Dates: start: 20040101
  2. DARUNAVIR [Concomitant]
     Route: 065
  3. RITONAVIR [Concomitant]
     Route: 065
  4. ABACAVIR SULFATE [Concomitant]
     Route: 065
  5. TENOFOVIR [Concomitant]
     Route: 065
  6. FORMOTEROL FUMARATE [Concomitant]
     Route: 065
  7. ACYCLOVIR [Concomitant]
     Route: 065
  8. [THERAPY UNSPECIFIED] [Concomitant]
     Route: 065

REACTIONS (1)
  - WEGENER'S GRANULOMATOSIS [None]
